FAERS Safety Report 19617163 (Version 2)
Quarter: 2021Q3

REPORT INFORMATION
  Report Type: Other
  Country: CA (occurrence: CA)
  Receive Date: 20210728
  Receipt Date: 20210921
  Transmission Date: 20211014
  Serious: Yes (Other)
  Sender: FDA-Public Use
  Company Number: CA-ROCHE-2394438

PATIENT
  Age: 58 Year
  Sex: Female

DRUGS (2)
  1. PFIZER?BIONTECH COVID?19 VACCINE [Suspect]
     Active Substance: TOZINAMERAN
     Indication: PRODUCT USED FOR UNKNOWN INDICATION
     Route: 065
  2. OCREVUS [Suspect]
     Active Substance: OCRELIZUMAB
     Indication: RELAPSING-REMITTING MULTIPLE SCLEROSIS
     Dosage: 300 MG AT DAY 0 AND 14, THEN 600 MG EVERY 6 MONTH ;ONGOING: YES
     Route: 042
     Dates: start: 20180717

REACTIONS (17)
  - Migraine [Recovered/Resolved]
  - Dizziness [Not Recovered/Not Resolved]
  - Fatigue [Not Recovered/Not Resolved]
  - Memory impairment [Not Recovered/Not Resolved]
  - Balance disorder [Not Recovered/Not Resolved]
  - Food allergy [Not Recovered/Not Resolved]
  - Psoriasis [Not Recovered/Not Resolved]
  - Onychomycosis [Not Recovered/Not Resolved]
  - Fall [Unknown]
  - Concussion [Not Recovered/Not Resolved]
  - Infusion related reaction [Recovering/Resolving]
  - Endometriosis [Unknown]
  - Speech disorder [Not Recovered/Not Resolved]
  - Fungal skin infection [Not Recovered/Not Resolved]
  - Myocardial infarction [Recovered/Resolved]
  - Depression [Not Recovered/Not Resolved]
  - Anaemia [Not Recovered/Not Resolved]

NARRATIVE: CASE EVENT DATE: 2019
